FAERS Safety Report 15483347 (Version 1)
Quarter: 2018Q4

REPORT INFORMATION
  Report Type: Spontaneous
  Country: US (occurrence: US)
  Receive Date: 20181010
  Receipt Date: 20181010
  Transmission Date: 20190205
  Serious: No
  Sender: FDA-Public Use
  Company Number: US-TARO-2017TAR00886

PATIENT
  Sex: Female

DRUGS (2)
  1. CARBAMAZEPINE ORAL SUSPENSION USP 100MG/5ML [Suspect]
     Active Substance: CARBAMAZEPINE
     Dosage: 60 MG, 4X/DAY
     Route: 048
     Dates: start: 2017, end: 2017
  2. CARBAMAZEPINE ORAL SUSPENSION USP 100MG/5ML [Suspect]
     Active Substance: CARBAMAZEPINE
     Indication: BIPOLAR DISORDER
     Dosage: 60 MG, 4X/DAY
     Route: 048

REACTIONS (6)
  - Visual impairment [Recovered/Resolved]
  - Disorientation [Recovered/Resolved]
  - Drug ineffective for unapproved indication [Not Recovered/Not Resolved]
  - Gait disturbance [Recovered/Resolved]
  - Feeling abnormal [Recovered/Resolved]
  - Muscle spasms [Recovered/Resolved]

NARRATIVE: CASE EVENT DATE: 2017
